FAERS Safety Report 8476022-0 (Version None)
Quarter: 2012Q2

REPORT INFORMATION
  Report Type: 
  Country: None (occurrence: None)
  Receive Date: 20120622
  Receipt Date: 20120608
  Transmission Date: 20120825
  Serious: Yes (Other)
  Sender: FDA-Public Use
  Company Number: 2012000141

PATIENT
  Age: 74 Year
  Sex: Male

DRUGS (7)
  1. PANTOPRAZOLE [Concomitant]
  2. QVAR [Concomitant]
  3. ATORVASTATIN CALCIUM [Concomitant]
  4. KARDEGIC (ACETYLSALICYLATE LYSINE) [Concomitant]
  5. ACEON [Suspect]
     Indication: MYOCARDIAL INFARCTION
     Dosage: ORAL
     Route: 048
     Dates: start: 20110201, end: 20110801
  6. TENORMIN [Suspect]
     Indication: MYOCARDIAL INFARCTION
     Dosage: 100 MG, QD, ORAL
     Route: 048
     Dates: start: 20110201, end: 20120420
  7. CANDESARTAN CILEXETIL [Suspect]
     Indication: MYOCARDIAL INFARCTION
     Dosage: ORAL
     Route: 048
     Dates: start: 20110801, end: 20120420

REACTIONS (3)
  - TOXIC SKIN ERUPTION [None]
  - ECZEMA VESICULAR [None]
  - ECZEMA [None]
